FAERS Safety Report 7119662-3 (Version None)
Quarter: 2010Q4

REPORT INFORMATION
  Report Type: 
  Country: None (occurrence: None)
  Receive Date: 20101123
  Receipt Date: 20101116
  Transmission Date: 20110411
  Serious: Yes (Other)
  Sender: FDA-Public Use
  Company Number: US-JNJCH-2010025078

PATIENT
  Age: 61 Year
  Sex: Female
  Weight: 74.8 kg

DRUGS (2)
  1. LISTERINE WHITENING QUICK DISSOLVING STRIPS [Suspect]
     Indication: DENTAL CARE
     Dosage: TEXT:TWO STRIPS 3-4 TIMES OVER A 2 DAY PERIOD
     Route: 048
     Dates: start: 20101029, end: 20101101
  2. SYNTHROID [Concomitant]
     Indication: THYROID DISORDER
     Dosage: TEXT:UNKNOWN
     Route: 065

REACTIONS (2)
  - APPLICATION SITE BURN [None]
  - ORAL PAIN [None]
